FAERS Safety Report 21064982 (Version 2)
Quarter: 2022Q3

REPORT INFORMATION
  Report Type: Spontaneous
  Country: AR (occurrence: AR)
  Receive Date: 20220711
  Receipt Date: 20220804
  Transmission Date: 20221027
  Serious: Yes (Other)
  Sender: FDA-Public Use
  Company Number: AR-GLAXOSMITHKLINE-AR2022AMR102642

PATIENT

DRUGS (1)
  1. BENLYSTA [Suspect]
     Active Substance: BELIMUMAB
     Indication: Systemic lupus erythematosus
     Dosage: UNK, 120-400 MG Z (EVERY 28 DAYS)
     Route: 042
     Dates: start: 20220216

REACTIONS (8)
  - Systemic lupus erythematosus [Recovered/Resolved]
  - Cataract [Not Recovered/Not Resolved]
  - Back pain [Not Recovered/Not Resolved]
  - Gait disturbance [Not Recovered/Not Resolved]
  - Erythema [Unknown]
  - Contusion [Unknown]
  - Influenza [Not Recovered/Not Resolved]
  - Dry eye [Not Recovered/Not Resolved]
